FAERS Safety Report 20100678 (Version 1)
Quarter: 2021Q4

REPORT INFORMATION
  Report Type: Spontaneous
  Country: US (occurrence: US)
  Receive Date: 20211123
  Receipt Date: 20211123
  Transmission Date: 20220303
  Serious: No
  Sender: FDA-Public Use
  Company Number: US-CELGENE-USA-20211104055

PATIENT
  Sex: Male
  Weight: 69.644 kg

DRUGS (14)
  1. REVLIMID [Suspect]
     Active Substance: LENALIDOMIDE
     Indication: Plasma cell myeloma recurrent
     Dosage: 25 MILLIGRAM
     Route: 048
     Dates: start: 201109
  2. REVLIMID [Suspect]
     Active Substance: LENALIDOMIDE
     Route: 048
     Dates: start: 201511
  3. REVLIMID [Suspect]
     Active Substance: LENALIDOMIDE
     Route: 048
     Dates: start: 201611
  4. REVLIMID [Suspect]
     Active Substance: LENALIDOMIDE
     Route: 048
     Dates: start: 201709
  5. REVLIMID [Suspect]
     Active Substance: LENALIDOMIDE
     Route: 048
     Dates: start: 20210707
  6. DEXAMETHASONE [Concomitant]
     Active Substance: DEXAMETHASONE
     Route: 065
  7. MOVANTIK [Concomitant]
     Active Substance: NALOXEGOL OXALATE
     Route: 065
  8. SENNA [Concomitant]
     Active Substance: SENNA LEAF\SENNOSIDES\SENNOSIDES A AND B
     Route: 065
  9. ELIQUIS [Concomitant]
     Active Substance: APIXABAN
     Route: 065
  10. LYRICA [Concomitant]
     Active Substance: PREGABALIN
     Route: 065
  11. NINLARO [Concomitant]
     Active Substance: IXAZOMIB CITRATE
     Route: 065
  12. METOPROLOL [Concomitant]
     Active Substance: METOPROLOL
     Route: 065
  13. HYDROCODONE [Concomitant]
     Active Substance: HYDROCODONE
     Route: 065
  14. MORPHINE [Concomitant]
     Active Substance: MORPHINE
     Route: 065

REACTIONS (1)
  - Dermatitis diaper [Unknown]
